FAERS Safety Report 4640732-3 (Version None)
Quarter: 2005Q2

REPORT INFORMATION
  Report Type: 
  Country: None (occurrence: None)
  Receive Date: 20050419
  Receipt Date: 20050407
  Transmission Date: 20051028
  Serious: Yes (Hospitalization)
  Sender: FDA-Public Use
  Company Number: LTI2005A00088

PATIENT
  Age: 46 Year
  Sex: Male

DRUGS (5)
  1. ACTOS [Suspect]
     Indication: DIABETES MELLITUS NON-INSULIN-DEPENDENT
     Route: 048
  2. DIAMICRON (GLICLAZIDE) [Suspect]
     Indication: DIABETES MELLITUS NON-INSULIN-DEPENDENT
     Dosage: 120 MG
     Route: 048
  3. MEDIATOR (BENFLUOREX HYDROCHLORIDE) [Concomitant]
  4. VIRAMUNE [Concomitant]
  5. COMBIVIR [Concomitant]

REACTIONS (1)
  - MYOCARDIAL INFARCTION [None]
